FAERS Safety Report 9235682 (Version 5)
Quarter: 2013Q3

REPORT INFORMATION
  Report Type: Spontaneous
  Country: DK (occurrence: DK)
  Receive Date: 20130417
  Receipt Date: 20130827
  Transmission Date: 20140515
  Serious: Yes (Death)
  Sender: FDA-Public Use
  Company Number: DK-SANOFI-AVENTIS-2013SA038710

PATIENT
  Age: 69 Year
  Sex: Male

DRUGS (4)
  1. SOLOSTAR [Suspect]
     Indication: TYPE 2 DIABETES MELLITUS
     Route: 058
     Dates: end: 20130106
  2. LANTUS SOLOSTAR [Suspect]
     Indication: TYPE 2 DIABETES MELLITUS
     Dosage: UNK
     Route: 058
     Dates: end: 20130106
  3. FLEXPEN [Suspect]
     Indication: TYPE 2 DIABETES MELLITUS
  4. NOVORAPID [Suspect]
     Indication: TYPE 2 DIABETES MELLITUS
     Dosage: UNK
     Route: 058

REACTIONS (3)
  - Accidental overdose [Fatal]
  - Wrong drug administered [Fatal]
  - Device malfunction [Fatal]
